FAERS Safety Report 9869855 (Version 1)
Quarter: 2014Q1

REPORT INFORMATION
  Report Type: Spontaneous
  Country: GB (occurrence: None)
  Receive Date: 20140131
  Receipt Date: 20140131
  Transmission Date: 20141002
  Serious: Yes (Hospitalization, Other)
  Sender: FDA-Public Use
  Company Number: AUR-APL-2014-00756

PATIENT
  Age: 67 Year
  Sex: Female
  Weight: 103 kg

DRUGS (9)
  1. QUETIAPINE (QUETIAPINE) [Suspect]
     Indication: SCHIZOPHRENIA
     Dosage: 1300 MG (150 MG,2 IN 1 D),ORAL
     Route: 048
  2. ASPIRIN (ACETYLSALICYLIC ACID) [Concomitant]
  3. CO-CODAMOL (PANADEINE CO) [Concomitant]
  4. DIAZEPAM (DIAZEPAM) [Concomitant]
  5. IPRATROPIUM BROMIDE (IPRATROPIUM BROMIDE) [Concomitant]
  6. METFORMIN (METFORMIN) [Concomitant]
  7. PRAVASTATIN (PRAVASTATIN) [Concomitant]
  8. RAMIPRIL (RAMIPRIL) [Concomitant]
  9. SERTRALINE (SERTRALINE) [Concomitant]

REACTIONS (1)
  - Grand mal convulsion [None]
